FAERS Safety Report 14898920 (Version 2)
Quarter: 2018Q3

REPORT INFORMATION
  Report Type: Spontaneous
  Country: JP (occurrence: JP)
  Receive Date: 20180515
  Receipt Date: 20180807
  Transmission Date: 20181010
  Serious: Yes (Death, Other)
  Sender: FDA-Public Use
  Company Number: JP-SA-2018SA137498

PATIENT
  Age: 69 Year
  Sex: Male

DRUGS (8)
  1. ELPLAT [Suspect]
     Active Substance: OXALIPLATIN
     Indication: PANCREATIC CARCINOMA
     Dosage: 140 MG,QCY
     Route: 041
     Dates: start: 201703, end: 201703
  2. IRINOTECAN HYDROCHLORIDE. [Concomitant]
     Active Substance: IRINOTECAN HYDROCHLORIDE
     Dosage: 140 MG,QCY
     Route: 065
     Dates: start: 201703, end: 201703
  3. IRINOTECAN HYDROCHLORIDE. [Concomitant]
     Active Substance: IRINOTECAN HYDROCHLORIDE
     Dosage: 140 MG,QCY
     Dates: start: 201709, end: 201709
  4. ELPLAT [Suspect]
     Active Substance: OXALIPLATIN
     Dosage: 140 MG,QCY
     Route: 041
     Dates: start: 201709, end: 201709
  5. FLUOROURACIL. [Concomitant]
     Active Substance: FLUOROURACIL
     Dosage: UNK UNK,QCY
     Route: 040
     Dates: start: 201703, end: 201703
  6. CALCIUM LEVOFOLINATE [Concomitant]
     Active Substance: LEVOLEUCOVORIN CALCIUM
     Dosage: UNK UNK,QCY
     Route: 040
     Dates: start: 201703, end: 201703
  7. FLUOROURACIL. [Concomitant]
     Active Substance: FLUOROURACIL
     Dosage: 3500 MG,QCY
     Route: 041
     Dates: start: 201709, end: 201709
  8. CALCIUM LEVOFOLINATE [Concomitant]
     Active Substance: LEVOLEUCOVORIN CALCIUM
     Dosage: 3500 MG,QCY
     Route: 041
     Dates: start: 201709, end: 201709

REACTIONS (6)
  - Jaundice [Unknown]
  - Neutropenia [Unknown]
  - Activated partial thromboplastin time prolonged [Unknown]
  - Ascites [Unknown]
  - Thrombocytopenia [Unknown]
  - Hepatic failure [Unknown]

NARRATIVE: CASE EVENT DATE: 201709
